FAERS Safety Report 8109370 (Version 2)
Quarter: 2013Q4

REPORT INFORMATION
  Report Type: Spontaneous
  Country: US (occurrence: US)
  Receive Date: 20110826
  Receipt Date: 20131202
  Transmission Date: 20140711
  Serious: Yes (Other)
  Sender: FDA-Public Use
  Company Number: US-BAYER-2011-075155

PATIENT
  Sex: Female

DRUGS (8)
  1. YAZ [Suspect]
  2. YASMIN [Suspect]
  3. TYLENOL [PARACETAMOL] [Concomitant]
  4. CIPROFLOXACIN [Concomitant]
  5. PERCOCET [Concomitant]
  6. REGLAN [Concomitant]
  7. NEXIUM [Concomitant]
  8. PEPTO-BISMOL [Concomitant]

REACTIONS (4)
  - Cholecystitis chronic [None]
  - Gallbladder injury [Unknown]
  - Injury [Unknown]
  - Pain [Unknown]
